FAERS Safety Report 12403803 (Version 1)
Quarter: 2016Q2

REPORT INFORMATION
  Report Type: Spontaneous
  Country: FR (occurrence: FR)
  Receive Date: 20160525
  Receipt Date: 20160525
  Transmission Date: 20160815
  Serious: Yes (Death, Other)
  Sender: FDA-Public Use
  Company Number: FR-SA-POMP-1001737

PATIENT
  Age: 24 Month
  Sex: Male

DRUGS (1)
  1. MYOZYME [Suspect]
     Active Substance: ALGLUCOSIDASE ALFA
     Indication: GLYCOGEN STORAGE DISEASE TYPE II
     Dosage: UNK
     Route: 042

REACTIONS (3)
  - Cardio-respiratory arrest [Unknown]
  - Respiratory disorder [Unknown]
  - Death [Fatal]

NARRATIVE: CASE EVENT DATE: 20110929
